FAERS Safety Report 9979963 (Version 1)
Quarter: 2014Q1

REPORT INFORMATION
  Report Type: Report from Study
  Country: US (occurrence: US)
  Receive Date: 20140307
  Receipt Date: 20140307
  Transmission Date: 20141002
  Serious: No
  Sender: FDA-Public Use
  Company Number: US-ABBVIE-13P-163-1174226-00

PATIENT
  Sex: Female

DRUGS (12)
  1. HUMIRA [Suspect]
     Indication: CROHN^S DISEASE
     Dates: start: 20131106, end: 20131106
  2. HUMIRA [Suspect]
     Dates: start: 20131120, end: 20131120
  3. HUMIRA [Suspect]
  4. TRAMADOL [Suspect]
     Indication: BACK PAIN
  5. CARDIZEM [Concomitant]
     Indication: HYPERTENSION
  6. ACCUPRIL [Concomitant]
     Indication: HYPERTENSION
  7. LOMOTIL [Concomitant]
     Indication: CROHN^S DISEASE
  8. LOMOTIL [Concomitant]
     Indication: DIARRHOEA
  9. VITAMIN D [Concomitant]
     Indication: PRODUCT USED FOR UNKNOWN INDICATION
  10. MULTIVITAMIN [Concomitant]
     Indication: PRODUCT USED FOR UNKNOWN INDICATION
  11. PRILIA [Concomitant]
     Indication: OSTEOPOROSIS
  12. UNKNOWN MEDICATION [Concomitant]
     Indication: PRODUCT USED FOR UNKNOWN INDICATION
     Dosage: PILL

REACTIONS (3)
  - Spinal compression fracture [Not Recovered/Not Resolved]
  - Back pain [Not Recovered/Not Resolved]
  - Drug ineffective [Unknown]
